FAERS Safety Report 5801260-2 (Version None)
Quarter: 2008Q3

REPORT INFORMATION
  Report Type: 
  Country: None (occurrence: None)
  Receive Date: 20080703
  Receipt Date: 20080703
  Transmission Date: 20090109
  Serious: Yes (Disabling)
  Sender: FDA-Public Use
  Company Number: None

PATIENT
  Age: 79 Year
  Sex: Female
  Weight: 47.6277 kg

DRUGS (1)
  1. FORTICAL [Suspect]
     Indication: BONE DISORDER
     Dosage: 1 SPRAY/DA. 3.7ML 1 PER DA.
     Dates: start: 20070601, end: 20080501

REACTIONS (3)
  - ARTHRALGIA [None]
  - MYALGIA [None]
  - PAIN IN EXTREMITY [None]
